FAERS Safety Report 7071534-9 (Version None)
Quarter: 2010Q4

REPORT INFORMATION
  Report Type: 
  Country: None (occurrence: None)
  Receive Date: 20101029
  Receipt Date: 20090918
  Transmission Date: 20110411
  Serious: No
  Sender: FDA-Public Use
  Company Number: A0808070A

PATIENT
  Age: 37 Year
  Sex: Female

DRUGS (3)
  1. ADVAIR DISKUS 100/50 [Suspect]
     Indication: ASTHMA
     Dosage: 1PUFF TWICE PER DAY
     Route: 055
     Dates: start: 20071001
  2. DIFLUCAN [Concomitant]
  3. PROVENTIL [Concomitant]

REACTIONS (3)
  - ORAL FUNGAL INFECTION [None]
  - SWOLLEN TONGUE [None]
  - THROAT IRRITATION [None]
